FAERS Safety Report 13302918 (Version 1)
Quarter: 2017Q1

REPORT INFORMATION
  Report Type: Spontaneous
  Country: US (occurrence: US)
  Receive Date: 20170307
  Receipt Date: 20170307
  Transmission Date: 20170428
  Serious: Yes (Other)
  Sender: FDA-Public Use
  Company Number: US-MYLANLABS-2017M1013864

PATIENT

DRUGS (9)
  1. AZATHIOPRINE. [Suspect]
     Active Substance: AZATHIOPRINE
     Indication: HYPEREOSINOPHILIC SYNDROME
     Dosage: 50 MG/DAY
     Route: 048
     Dates: start: 201305
  2. HYDROXYCARBAMIDE [Concomitant]
     Active Substance: HYDROXYUREA
     Indication: HYPEREOSINOPHILIC SYNDROME
     Route: 048
     Dates: start: 201206, end: 201302
  3. METRONIDAZOLE. [Concomitant]
     Active Substance: METRONIDAZOLE
     Indication: CLOSTRIDIUM DIFFICILE INFECTION
     Route: 065
     Dates: start: 201208
  4. PREDNISONE. [Suspect]
     Active Substance: PREDNISONE
     Dosage: 2.5 MG/DAY
     Route: 048
  5. PREDNISONE. [Suspect]
     Active Substance: PREDNISONE
     Indication: HYPEREOSINOPHILIC SYNDROME
     Dosage: 40 MG/DAY, THE DOSE WAS FURTHER REDUCED TO 2.5 MG/DAY
     Route: 048
     Dates: start: 201112
  6. CIPROFLOXACIN. [Concomitant]
     Active Substance: CIPROFLOXACIN
     Indication: CLOSTRIDIUM DIFFICILE INFECTION
     Route: 065
     Dates: start: 201208
  7. MEPOLIZUMAB [Concomitant]
     Active Substance: MEPOLIZUMAB
     Indication: HYPEREOSINOPHILIC SYNDROME
     Dosage: 750MG
     Route: 042
     Dates: start: 201302
  8. PEGINTERFERON ALFA-2B [Suspect]
     Active Substance: PEGINTERFERON ALFA-2B
     Indication: HYPEREOSINOPHILIC SYNDROME
     Dosage: 50 MCG
     Route: 058
     Dates: start: 201204, end: 201206
  9. MESALAZINE [Concomitant]
     Active Substance: MESALAMINE
     Indication: HYPEREOSINOPHILIC SYNDROME
     Route: 048
     Dates: start: 201212

REACTIONS (7)
  - Depression [Unknown]
  - Hypersensitivity [Unknown]
  - Headache [Recovered/Resolved]
  - Suicidal ideation [Unknown]
  - Mood swings [Unknown]
  - Weight increased [Unknown]
  - Idiosyncratic drug reaction [Unknown]
